FAERS Safety Report 9842941 (Version 3)
Quarter: 2014Q1

REPORT INFORMATION
  Report Type: Spontaneous
  Country: JP (occurrence: JP)
  Receive Date: 20140124
  Receipt Date: 20140129
  Transmission Date: 20141002
  Serious: Yes (Other)
  Sender: FDA-Public Use
  Company Number: JP-009507513-1401JPN007180

PATIENT
  Age: 38 Year
  Sex: Female

DRUGS (9)
  1. KIPRES [Suspect]
     Indication: NASOPHARYNGITIS
     Dosage: 10 MG, QD
     Route: 048
     Dates: start: 20130315, end: 201303
  2. KIPRES [Suspect]
     Indication: BRONCHITIS
  3. MUCOSOLVAN L [Concomitant]
     Dosage: 45 MG, QD
     Route: 048
     Dates: start: 20130315
  4. PL-GRANULES [Concomitant]
     Dosage: 3 G, QD
     Route: 048
     Dates: start: 20130315
  5. BISOLVON [Concomitant]
     Dosage: 12 MG, QD
     Route: 048
     Dates: start: 20130315, end: 20130316
  6. MEDICON (DEXTROMETHORPHAN HYDROBROMIDE) [Concomitant]
     Dosage: 45 MG, QD
     Route: 048
     Dates: start: 20130315
  7. NIPOLAZIN [Concomitant]
     Dosage: 3 MG, PRN (1 TIME)
     Route: 048
  8. LEVOFLOXACIN [Concomitant]
     Dosage: 400 MG, QD
     Route: 048
     Dates: start: 20130305, end: 20130309
  9. RULID [Concomitant]
     Dosage: 300 MG, QD
     Route: 048
     Dates: start: 20130315

REACTIONS (1)
  - Liver disorder [Unknown]
